FAERS Safety Report 8574391-4 (Version None)
Quarter: 2012Q3

REPORT INFORMATION
  Report Type: 
  Country: None (occurrence: None)
  Receive Date: 20120806
  Receipt Date: 20120726
  Transmission Date: 20120928
  Serious: Yes (Other)
  Sender: FDA-Public Use
  Company Number: GB-TEVA-350429ISR

PATIENT
  Age: 58 Year
  Sex: Female

DRUGS (2)
  1. ARCOXIA [Interacting]
     Indication: ARTHRITIS
     Route: 048
     Dates: start: 20120524, end: 20120531
  2. WARFARIN SODIUM [Suspect]

REACTIONS (2)
  - DRUG INTERACTION [None]
  - INTERNATIONAL NORMALISED RATIO INCREASED [None]
